FAERS Safety Report 7267575-9 (Version None)
Quarter: 2011Q1

REPORT INFORMATION
  Report Type: 
  Country: None (occurrence: None)
  Receive Date: 20110201
  Receipt Date: 20110125
  Transmission Date: 20110831
  Serious: Yes (Hospitalization)
  Sender: FDA-Public Use
  Company Number: DE-ELI_LILLY_AND_COMPANY-DE201101005993

PATIENT
  Age: 68 Year
  Sex: Male

DRUGS (7)
  1. SIOFOR [Concomitant]
     Dosage: 1000 D/F, UNK
  2. SIMVASTATIN [Concomitant]
     Dosage: 20 MG, UNK
  3. BYETTA [Suspect]
     Dosage: 10 UG, UNKNOWN
     Route: 058
  4. DELIX [Concomitant]
     Dosage: 2.5 MG, UNK
  5. NEXIUM-MUPS /01479302/ [Concomitant]
     Dosage: 40 MG, UNK
  6. BETAPRESSIN [Concomitant]
  7. VALORON N [Concomitant]

REACTIONS (3)
  - BLOOD GLUCOSE INCREASED [None]
  - URETERIC OBSTRUCTION [None]
  - URETERAL DISORDER [None]
